FAERS Safety Report 6389752-1 (Version None)
Quarter: 2009Q4

REPORT INFORMATION
  Report Type: 
  Country: None (occurrence: None)
  Receive Date: 20091001
  Receipt Date: 20090917
  Transmission Date: 20100525
  Serious: Yes (Death, Hospitalization)
  Sender: FDA-Public Use
  Company Number: 2009SP001661

PATIENT
  Age: 85 Year
  Sex: Female

DRUGS (12)
  1. ALVESCO [Suspect]
     Indication: WHEEZING
     Dosage: 160 UG; 1X; INHALATION
     Route: 055
     Dates: start: 20090618, end: 20090618
  2. ATIVAN [Concomitant]
  3. BETAPACE [Concomitant]
  4. LASIX [Concomitant]
  5. THEOPHYLLINE [Concomitant]
  6. PRILOSEC [Concomitant]
  7. ALBUTEROL [Concomitant]
  8. CITRICAL /00108001/ [Concomitant]
  9. MULTI-VITAMINS [Concomitant]
  10. VICODIN [Concomitant]
  11. BIAXIN [Concomitant]
  12. POTASSIUM CHLORIDE [Concomitant]

REACTIONS (18)
  - ACUTE RESPIRATORY FAILURE [None]
  - ANAPHYLACTIC REACTION [None]
  - ATRIAL FIBRILLATION [None]
  - BLOOD PRESSURE INCREASED [None]
  - CEREBROVASCULAR ACCIDENT [None]
  - CIRCULATORY COLLAPSE [None]
  - DEPRESSION [None]
  - DIABETES MELLITUS [None]
  - ENDOTRACHEAL INTUBATION COMPLICATION [None]
  - FATIGUE [None]
  - HAEMOTHORAX [None]
  - HYPOKALAEMIA [None]
  - LUNG INFILTRATION [None]
  - ORAL CANDIDIASIS [None]
  - PAIN [None]
  - PNEUMOTHORAX [None]
  - RIB FRACTURE [None]
  - TROPONIN I INCREASED [None]
